FAERS Safety Report 4425217-1 (Version None)
Quarter: 2004Q3

REPORT INFORMATION
  Report Type: 
  Country: None (occurrence: None)
  Receive Date: 20040813
  Receipt Date: 20040802
  Transmission Date: 20050211
  Serious: Yes (Death)
  Sender: FDA-Public Use
  Company Number: US-JNJFOC-20040801398

PATIENT
  Sex: Female
  Weight: 64.41 kg

DRUGS (9)
  1. INFLIXIMAB [Suspect]
     Route: 042
  2. INFLIXIMAB [Suspect]
     Route: 042
  3. INFLIXIMAB [Suspect]
     Route: 042
  4. INFLIXIMAB [Suspect]
     Route: 042
  5. INFLIXIMAB [Suspect]
     Indication: CROHN'S DISEASE
     Route: 042
  6. MESALAMINE [Suspect]
     Indication: CROHN'S DISEASE
  7. ANTIBIOTICS [Concomitant]
     Indication: CROHN'S DISEASE
  8. BUDESONIDE [Suspect]
     Indication: CROHN'S DISEASE
  9. OTHER CROHN'S THERAPY [Concomitant]
     Indication: CROHN'S DISEASE

REACTIONS (5)
  - COLITIS ISCHAEMIC [None]
  - CONDITION AGGRAVATED [None]
  - CROHN'S DISEASE [None]
  - MULTI-ORGAN FAILURE [None]
  - SEPTIC SHOCK [None]
